FAERS Safety Report 10194491 (Version 1)
Quarter: 2014Q2

REPORT INFORMATION
  Report Type: Spontaneous
  Country: US (occurrence: US)
  Receive Date: 20140526
  Receipt Date: 20140526
  Transmission Date: 20141212
  Serious: No
  Sender: FDA-Public Use
  Company Number: US-BIOGENIDEC-2014BI043072

PATIENT
  Age: 52 Year
  Sex: Female

DRUGS (8)
  1. TECFIDERA [Suspect]
     Indication: MULTIPLE SCLEROSIS
     Route: 048
     Dates: start: 20140403
  2. TECFIDERA [Suspect]
     Indication: MULTIPLE SCLEROSIS
     Route: 048
     Dates: start: 20140410, end: 201404
  3. TECFIDERA [Suspect]
     Indication: MULTIPLE SCLEROSIS
     Route: 048
     Dates: start: 201404, end: 20140428
  4. IMITREX [Concomitant]
  5. PERCOCET [Concomitant]
  6. KLONOPIN [Concomitant]
  7. ANTIVERT [Concomitant]
  8. LEXAPRO [Concomitant]

REACTIONS (3)
  - Dizziness [Recovered/Resolved]
  - Prescribed underdose [Recovered/Resolved]
  - Nausea [Recovered/Resolved]
